FAERS Safety Report 21796184 (Version 1)
Quarter: 2022Q4

REPORT INFORMATION
  Report Type: Spontaneous
  Country: CA (occurrence: CA)
  Receive Date: 20221229
  Receipt Date: 20221229
  Transmission Date: 20230113
  Serious: Yes (Other)
  Sender: FDA-Public Use
  Company Number: CA-FreseniusKabi-FK202218307

PATIENT
  Sex: Male

DRUGS (2)
  1. CHORIONIC GONADOTROPIN [Suspect]
     Active Substance: CHORIOGONADOTROPIN ALFA
     Indication: Blood testosterone decreased
  2. CHORIONIC GONADOTROPIN [Suspect]
     Active Substance: CHORIOGONADOTROPIN ALFA
     Indication: Oestradiol decreased

REACTIONS (9)
  - Depressed level of consciousness [Unknown]
  - Incorrect dose administered [Unknown]
  - Chills [Unknown]
  - Feeling abnormal [Unknown]
  - Asthenia [Unknown]
  - Apathy [Unknown]
  - Depressed mood [Unknown]
  - Fatigue [Unknown]
  - Irritability [Unknown]
